FAERS Safety Report 6313477-1 (Version None)
Quarter: 2009Q3

REPORT INFORMATION
  Report Type: 
  Country: None (occurrence: None)
  Receive Date: 20090814
  Receipt Date: 20090814
  Transmission Date: 20100115
  Serious: Yes (Hospitalization, Other)
  Sender: FDA-Public Use
  Company Number: None

PATIENT
  Age: 58 Year
  Sex: Female
  Weight: 63.5036 kg

DRUGS (2)
  1. LEVAQUIN [Suspect]
     Indication: SINUS DISORDER
     Dosage: 1 PER DAY UNK
     Dates: start: 20070909, end: 20090605
  2. AVELOX [Suspect]
     Indication: SINUS DISORDER
     Dosage: 1 PER DAY UNK
     Dates: start: 20090529, end: 20090730

REACTIONS (11)
  - AMNESIA [None]
  - BLOOD GLUCOSE INCREASED [None]
  - DIZZINESS [None]
  - FEELING ABNORMAL [None]
  - HEADACHE [None]
  - HEART RATE INCREASED [None]
  - MUSCLE SPASMS [None]
  - PANIC ATTACK [None]
  - RESPIRATORY DISORDER [None]
  - SELF-INJURIOUS IDEATION [None]
  - THROAT TIGHTNESS [None]
